FAERS Safety Report 6786389-7 (Version None)
Quarter: 2010Q2

REPORT INFORMATION
  Report Type: 
  Country: None (occurrence: None)
  Receive Date: 20100623
  Receipt Date: 20100616
  Transmission Date: 20101027
  Serious: Yes (Death, Hospitalization)
  Sender: FDA-Public Use
  Company Number: GB-MPIJNJ-2010-01685

PATIENT

DRUGS (5)
  1. VELCADE [Suspect]
     Indication: MULTIPLE MYELOMA
     Dosage: 3.5 MG, CYCLIC
     Route: 065
     Dates: start: 20100104, end: 20100215
  2. VELCADE [Suspect]
     Dosage: 1.75 MG, CYCLIC
     Dates: start: 20100215, end: 20100409
  3. ACYCLOVIR [Concomitant]
     Dosage: 400 MG, UNK
  4. CODEINE SULFATE [Concomitant]
     Dosage: 30 MG, UNK
  5. LANSOPRAZOLE [Concomitant]
     Dosage: 30 MG, UNK

REACTIONS (2)
  - DEATH [None]
  - DIARRHOEA [None]
